FAERS Safety Report 11452249 (Version 1)
Quarter: 2015Q3

REPORT INFORMATION
  Report Type: Report from Study
  Country: NL (occurrence: NL)
  Receive Date: 20150903
  Receipt Date: 20150903
  Transmission Date: 20151125
  Serious: Yes (Death, Hospitalization)
  Sender: FDA-Public Use
  Company Number: NL-BEH-2015053668

PATIENT
  Age: 68 Year
  Sex: Male

DRUGS (2)
  1. HAEMOCOMPLETTAN P [Suspect]
     Active Substance: FIBRINOGEN HUMAN
     Indication: HAEMORRHAGE
  2. HAEMOCOMPLETTAN P [Suspect]
     Active Substance: FIBRINOGEN HUMAN
     Indication: HAEMORRHAGE

REACTIONS (8)
  - Muscular weakness [Fatal]
  - Cardiovascular disorder [Fatal]
  - Shock [Fatal]
  - Hypertension [Fatal]
  - Pneumococcal sepsis [Fatal]
  - Lung disorder [Fatal]
  - Renal failure [Fatal]
  - Negative cardiac inotropic effect [Fatal]
